FAERS Safety Report 17394688 (Version 1)
Quarter: 2020Q1

REPORT INFORMATION
  Report Type: Spontaneous
  Country: NL (occurrence: NL)
  Receive Date: 20200210
  Receipt Date: 20200210
  Transmission Date: 20200409
  Serious: Yes (Death)
  Sender: FDA-Public Use
  Company Number: NL-SUN PHARMACEUTICAL INDUSTRIES LTD-2020RR-235834

PATIENT
  Age: 77 Year
  Sex: Female
  Weight: 70.5 kg

DRUGS (3)
  1. ALENCALCI D3 (ALENDRONINEZUUR/CALCIUMCARBONAAT/COLECALCIFEROL)ALENC... [Concomitant]
     Indication: PRODUCT USED FOR UNKNOWN INDICATION
     Dosage: UNK
     Route: 065
  2. PREGABALIN. [Suspect]
     Active Substance: PREGABALIN
     Indication: PAIN
     Dosage: CAPSULE, 75 MG (MILLIGRAM), 2 KEER PER DAG, 1
     Route: 065
     Dates: start: 20191105
  3. OMEPRAZOLOMEPRAZOL CAPSULE MSR 20MG [Concomitant]
     Indication: PRODUCT USED FOR UNKNOWN INDICATION
     Dosage: UNK
     Route: 065

REACTIONS (1)
  - Sudden cardiac death [Fatal]

NARRATIVE: CASE EVENT DATE: 20191224
